FAERS Safety Report 10977163 (Version 1)
Quarter: 2015Q2

REPORT INFORMATION
  Report Type: Spontaneous
  Country: JP (occurrence: JP)
  Receive Date: 20150402
  Receipt Date: 20150402
  Transmission Date: 20150821
  Serious: Yes (Other)
  Sender: FDA-Public Use
  Company Number: JP-BRISTOL-MYERS SQUIBB COMPANY-BMS-2015-019354

PATIENT
  Age: 74 Year
  Sex: Male
  Weight: 62 kg

DRUGS (4)
  1. FLUOROURACIL. [Suspect]
     Active Substance: FLUOROURACIL
     Indication: COLORECTAL CANCER
     Dosage: UNK, TOTAL
     Route: 041
     Dates: start: 20150210, end: 20150212
  2. OXALIPLATIN. [Suspect]
     Active Substance: OXALIPLATIN
     Indication: COLORECTAL CANCER
     Dosage: UNK, TOTAL
     Route: 041
     Dates: start: 20150210, end: 20150212
  3. ERBITUX [Suspect]
     Active Substance: CETUXIMAB
     Indication: COLORECTAL CANCER
     Dosage: UNK, TOTAL
     Route: 041
     Dates: start: 20150210, end: 20150212
  4. CALCIUM FOLINATE [Suspect]
     Active Substance: LEUCOVORIN CALCIUM
     Indication: COLORECTAL CANCER
     Dosage: UNK, TOTAL
     Route: 041
     Dates: start: 20150210, end: 20150212

REACTIONS (4)
  - Gastroenteritis staphylococcal [Recovering/Resolving]
  - Hyperkalaemia [Recovering/Resolving]
  - Device related infection [Recovering/Resolving]
  - Urinary tract infection [Recovering/Resolving]

NARRATIVE: CASE EVENT DATE: 20150212
